FAERS Safety Report 6043004-8 (Version None)
Quarter: 2009Q1

REPORT INFORMATION
  Report Type: 
  Country: None (occurrence: None)
  Receive Date: 20090119
  Receipt Date: 20090115
  Transmission Date: 20090719
  Serious: Yes (Hospitalization)
  Sender: FDA-Public Use
  Company Number: US-GILEAD-2009-0019852

PATIENT
  Sex: Female
  Weight: 76.726 kg

DRUGS (10)
  1. LETAIRIS [Suspect]
     Indication: PULMONARY HYPERTENSION
     Route: 048
     Dates: start: 20070816
  2. FUROSEMIDE [Concomitant]
  3. COMBIVENT [Concomitant]
  4. CLARITIN [Concomitant]
  5. NIASPAN [Concomitant]
  6. CYMBALTA [Concomitant]
  7. FLEXERIL [Concomitant]
  8. DARVOCET-N 100 [Concomitant]
  9. KLOR-CON M20 [Concomitant]
  10. K-DUR [Concomitant]

REACTIONS (3)
  - COUGH [None]
  - FLUID RETENTION [None]
  - PULMONARY HYPERTENSION [None]
